FAERS Safety Report 19707895 (Version 1)
Quarter: 2021Q3

REPORT INFORMATION
  Report Type: Spontaneous
  Country: US (occurrence: US)
  Receive Date: 20210816
  Receipt Date: 20210816
  Transmission Date: 20211014
  Serious: No
  Sender: FDA-Public Use
  Company Number: US-GALEN SPECIALTY PHARMA US LLC-AE-2020-0762

PATIENT
  Age: 40 Year
  Sex: Female

DRUGS (4)
  1. SYNERA [Suspect]
     Active Substance: LIDOCAINE\TETRACAINE
     Indication: ANALGESIC THERAPY
     Route: 061
  2. PROGESTERONE INJECTION [Concomitant]
     Active Substance: PROGESTERONE
     Route: 030
  3. KEPPRA [Concomitant]
     Active Substance: LEVETIRACETAM
     Dosage: 500MG IN MORNING AND X2 IN EVENING
  4. LEVOTHYROXINE. [Concomitant]
     Active Substance: LEVOTHYROXINE

REACTIONS (5)
  - Application site erythema [Recovered/Resolved]
  - Drug ineffective [Unknown]
  - Product use in unapproved indication [Unknown]
  - Paraesthesia [Recovered/Resolved]
  - Burning sensation [Recovered/Resolved]
